FAERS Safety Report 9115058 (Version 1)
Quarter: 2013Q1

REPORT INFORMATION
  Report Type: Spontaneous
  Country: DK (occurrence: None)
  Receive Date: 20130125
  Receipt Date: 20130125
  Transmission Date: 20140127
  Serious: Yes (Hospitalization)
  Sender: FDA-Public Use
  Company Number: 2013MA000572

PATIENT
  Age: 49 Year
  Sex: Female

DRUGS (2)
  1. OXALIPLATIN FOR INJECTION USP 100MG SINGLE-DOSE VIALS (ATLLC) (OXALIPLATIN) [Suspect]
     Route: 042
  2. CALCIUM FOLINATE (CALCIUM FOLINATE) [Suspect]

REACTIONS (3)
  - Chills [None]
  - Chills [None]
  - Cold sweat [None]
